FAERS Safety Report 14806046 (Version 1)
Quarter: 2018Q1

REPORT INFORMATION
  Report Type: Spontaneous
  Country: US (occurrence: US)
  Receive Date: 20180331
  Receipt Date: 20180331
  Transmission Date: 20180509
  Serious: No
  Sender: FDA-Public Use
  Company Number: None

PATIENT
  Age: 37 Year
  Sex: Male
  Weight: 72 kg

DRUGS (1)
  1. GABAPENTIN. [Suspect]
     Active Substance: GABAPENTIN
     Dosage: EVERY 6 HOURS 3 300MG; ORAL?
     Route: 048
     Dates: start: 20171001, end: 20180312

REACTIONS (8)
  - Crying [None]
  - Hyperhidrosis [None]
  - Insomnia [None]
  - Drug ineffective [None]
  - Feeling hot [None]
  - Mental disorder [None]
  - Fear [None]
  - Influenza like illness [None]

NARRATIVE: CASE EVENT DATE: 20180320
